FAERS Safety Report 23548919 (Version 2)
Quarter: 2024Q2

REPORT INFORMATION
  Report Type: Spontaneous
  Country: ZA (occurrence: ZA)
  Receive Date: 20240221
  Receipt Date: 20240513
  Transmission Date: 20240716
  Serious: Yes (Other)
  Sender: FDA-Public Use
  Company Number: ZA-PFIZER INC-202400043647

PATIENT
  Age: 49 Year
  Sex: Female
  Weight: 68 kg

DRUGS (4)
  1. SULFASALAZINE [Suspect]
     Active Substance: SULFASALAZINE
     Dosage: UNK, 2X/DAY
     Dates: start: 20190718
  2. CHLOROQUINE [Suspect]
     Active Substance: CHLOROQUINE
     Dosage: 3 DAYS WEEK
     Dates: start: 20191218
  3. COSENTYX [Concomitant]
     Active Substance: SECUKINUMAB
  4. IXEKIZUMAB [Concomitant]
     Active Substance: IXEKIZUMAB

REACTIONS (5)
  - Diabetes mellitus [Unknown]
  - Hepatic steatosis [Unknown]
  - Liver disorder [Unknown]
  - Splenomegaly [Unknown]
  - Joint swelling [Unknown]

NARRATIVE: CASE EVENT DATE: 20190101
